FAERS Safety Report 8287549-9 (Version None)
Quarter: 2012Q2

REPORT INFORMATION
  Report Type: 
  Country: None (occurrence: None)
  Receive Date: 20120416
  Receipt Date: 20120402
  Transmission Date: 20120825
  Serious: No
  Sender: FDA-Public Use
  Company Number: PHEH2012US006038

PATIENT
  Sex: Female
  Weight: 54.422 kg

DRUGS (8)
  1. TASIGNA [Suspect]
     Indication: CHRONIC MYELOID LEUKAEMIA
     Dosage: 200 MG, BID
     Route: 048
     Dates: start: 20111130
  2. COUMADIN [Concomitant]
  3. CALCIUM CARBONATE [Concomitant]
  4. TOPROL-XL [Concomitant]
  5. DILANTIN [Concomitant]
  6. MAGNESIUM [Concomitant]
  7. ZOCOR [Concomitant]
  8. ATIVAN [Concomitant]

REACTIONS (8)
  - ASPARTATE AMINOTRANSFERASE INCREASED [None]
  - DECREASED APPETITE [None]
  - BLOOD CREATININE DECREASED [None]
  - BLOOD CALCIUM DECREASED [None]
  - BLOOD ALKALINE PHOSPHATASE INCREASED [None]
  - MENTAL STATUS CHANGES [None]
  - ALANINE AMINOTRANSFERASE INCREASED [None]
  - FATIGUE [None]
